FAERS Safety Report 5333585-1 (Version None)
Quarter: 2007Q2

REPORT INFORMATION
  Report Type: 
  Country: None (occurrence: None)
  Receive Date: 20070308
  Receipt Date: 20070102
  Transmission Date: 20071010
  Serious: No
  Sender: FDA-Public Use
  Company Number: 2006-BP-12896BP

PATIENT
  Sex: Female

DRUGS (8)
  1. SPIRIVA [Suspect]
     Indication: CHRONIC OBSTRUCTIVE PULMONARY DISEASE
     Dosage: 18 MCG (18 MCG, 1 IN 1 D), IH
     Route: 055
     Dates: start: 20061001
  2. HYDROCHLOROTHIAZIDE [Concomitant]
  3. POTASSIUM (POTASSIUM) [Concomitant]
  4. AZMACORT [Concomitant]
  5. LENOXIN (DIGOXIN) [Concomitant]
  6. K-DUR 10 [Concomitant]
  7. ZOCOR [Concomitant]
  8. TYLENOL [Concomitant]

REACTIONS (2)
  - BRONCHIAL OBSTRUCTION [None]
  - DYSPNOEA [None]
